FAERS Safety Report 22629600 (Version 1)
Quarter: 2023Q2

REPORT INFORMATION
  Report Type: Spontaneous
  Country: DE (occurrence: DE)
  Receive Date: 20230622
  Receipt Date: 20230622
  Transmission Date: 20230721
  Serious: Yes (Other)
  Sender: FDA-Public Use
  Company Number: DE-002147023-NVSC2023DE135143

PATIENT
  Age: 45 Year
  Sex: Male

DRUGS (5)
  1. METHOTREXATE SODIUM [Suspect]
     Active Substance: METHOTREXATE SODIUM
     Indication: Transplant
     Dosage: UNK
     Route: 065
  2. FLUDARABINE [Suspect]
     Active Substance: FLUDARABINE PHOSPHATE
     Indication: Transplant
     Dosage: UNK
     Route: 065
  3. CYCLOSPORINE [Suspect]
     Active Substance: CYCLOSPORINE
     Indication: Transplant
     Dosage: UNK
     Route: 065
  4. BUSULFAN [Concomitant]
     Active Substance: BUSULFAN
     Indication: Transplant
     Dosage: 3.2 MG/KG, 4X/DAY
     Route: 065
  5. SORAFENIB [Concomitant]
     Active Substance: SORAFENIB
     Dosage: UNK
     Route: 065

REACTIONS (2)
  - Graft versus host disease in skin [Recovered/Resolved]
  - Off label use [Unknown]
